FAERS Safety Report 6133074-0 (Version None)
Quarter: 2009Q1

REPORT INFORMATION
  Report Type: 
  Country: None (occurrence: None)
  Receive Date: 20090326
  Receipt Date: 20090317
  Transmission Date: 20090719
  Serious: Yes (Hospitalization)
  Sender: FDA-Public Use
  Company Number: US-BIOGENIDEC-2009BI008264

PATIENT
  Age: 46 Year
  Sex: Male
  Weight: 68 kg

DRUGS (3)
  1. AVONEX [Suspect]
     Indication: MULTIPLE SCLEROSIS
     Route: 030
     Dates: start: 20070101
  2. PRIMIDONE [Concomitant]
     Indication: TREMOR
  3. PRIMIDONE [Concomitant]

REACTIONS (8)
  - COMA [None]
  - DEPRESSION [None]
  - DISTRACTIBILITY [None]
  - DYSGRAPHIA [None]
  - DYSPHEMIA [None]
  - MIGRAINE [None]
  - SUICIDE ATTEMPT [None]
  - TREMOR [None]
